FAERS Safety Report 7935623-6 (Version None)
Quarter: 2011Q4

REPORT INFORMATION
  Report Type: 
  Country: None (occurrence: None)
  Receive Date: 20111118
  Receipt Date: 20111109
  Transmission Date: 20120403
  Serious: Yes (Other)
  Sender: FDA-Public Use
  Company Number: 1000025459

PATIENT
  Age: 39 Year
  Sex: Female

DRUGS (1)
  1. FOSFOMYCIN (FOSFOMYCIN TROMETAMOL) (3 GRAM, GRANULATE) [Suspect]
     Indication: URINARY TRACT INFECTION
     Dosage: (3 GM, ONCE), ORAL
     Route: 048
     Dates: start: 20110928, end: 20110928

REACTIONS (2)
  - DYSPNOEA [None]
  - SWELLING [None]
